FAERS Safety Report 7478204-3 (Version None)
Quarter: 2011Q2

REPORT INFORMATION
  Report Type: 
  Country: None (occurrence: None)
  Receive Date: 20110513
  Receipt Date: 20110503
  Transmission Date: 20111010
  Serious: Yes (Other)
  Sender: FDA-Public Use
  Company Number: PHHY2011US37650

PATIENT
  Sex: Female

DRUGS (7)
  1. LISINOPRIL [Concomitant]
     Dosage: 5 MG, QD
  2. PRAVASTATIN SODIUM [Concomitant]
     Dosage: 40 MG, QD
  3. NIASPAN [Concomitant]
     Dosage: 500 MG, QD
  4. COREG [Concomitant]
     Dosage: 6.25 MG, BID
  5. PLAVIX [Concomitant]
     Dosage: 75 MG, QD
  6. ZOMETA [Suspect]
     Indication: NEOPLASM MALIGNANT
  7. FEMARA [Suspect]
     Indication: NEOPLASM MALIGNANT
     Dosage: 2.5 MG, QD

REACTIONS (6)
  - HEAD AND NECK CANCER [None]
  - BLOOD CREATINE DECREASED [None]
  - LUNG NEOPLASM MALIGNANT [None]
  - BONE NEOPLASM MALIGNANT [None]
  - BREAST CANCER [None]
  - MALIGNANT SPLENIC NEOPLASM [None]
